FAERS Safety Report 7259473-1 (Version None)
Quarter: 2011Q1

REPORT INFORMATION
  Report Type: 
  Country: None (occurrence: None)
  Receive Date: 20110129
  Receipt Date: 20100830
  Transmission Date: 20110831
  Serious: Yes (Hospitalization)
  Sender: FDA-Public Use
  Company Number: US-ABBOTT-10P-163-0666679-00

PATIENT
  Sex: Female
  Weight: 77.634 kg

DRUGS (2)
  1. MAXZIDE [Concomitant]
     Indication: HYPERTENSION
  2. HUMIRA [Suspect]
     Indication: CROHN'S DISEASE
     Dosage: DISCONTINUED FOR 6 WEEKS
     Route: 058
     Dates: end: 20100827

REACTIONS (4)
  - PNEUMONIA [None]
  - COUGH [None]
  - MALAISE [None]
  - NASOPHARYNGITIS [None]
